FAERS Safety Report 8768208 (Version 2)
Quarter: 2012Q4

REPORT INFORMATION
  Report Type: 
  Country: DE (occurrence: DE)
  Receive Date: 20120904
  Receipt Date: 20121109
  Transmission Date: 20130627
  Serious: Yes (Death)
  Sender: FDA-Public Use
  Company Number: DE-JNJFOC-20120900804

PATIENT

DRUGS (9)
  1. XARELTO [Suspect]
     Indication: PRODUCT USED FOR UNKNOWN INDICATION
     Route: 048
  2. POLIDOCANOL [Suspect]
     Indication: PRODUCT USED FOR UNKNOWN INDICATION
     Route: 061
  3. DYTIDE H [Concomitant]
     Route: 065
  4. PHYSIOTENS [Concomitant]
     Route: 065
  5. NOVODIGAL [Concomitant]
     Route: 065
  6. RESTEX [Concomitant]
     Route: 065
  7. SIFROL [Concomitant]
     Route: 065
  8. SYMBICORT [Concomitant]
     Route: 065
  9. SPIRIVA [Concomitant]
     Route: 065

REACTIONS (4)
  - Death [Fatal]
  - Petechiae [Unknown]
  - Haematoma [Unknown]
  - Pruritus [Unknown]
